FAERS Safety Report 7594783-X (Version None)
Quarter: 2011Q2

REPORT INFORMATION
  Report Type: 
  Country: None (occurrence: None)
  Receive Date: 20110614
  Receipt Date: 20101123
  Transmission Date: 20111010
  Serious: Yes (Other)
  Sender: FDA-Public Use
  Company Number: WWISSUE-527

PATIENT

DRUGS (1)
  1. CIPROFLOXACIN [Suspect]
     Indication: EAR OPERATION
     Dosage: 500 MG
     Dates: start: 20101101

REACTIONS (1)
  - HYPOAESTHESIA [None]
